FAERS Safety Report 12954907 (Version 1)
Quarter: 2016Q4

REPORT INFORMATION
  Report Type: Spontaneous
  Country: US (occurrence: US)
  Receive Date: 20161118
  Receipt Date: 20161118
  Transmission Date: 20170207
  Serious: Yes (Other)
  Sender: FDA-Public Use
  Company Number: US-BAYER-2016-206535

PATIENT
  Age: 58 Year
  Sex: Female

DRUGS (1)
  1. BAYER LOW DOSE [Suspect]
     Active Substance: ASPIRIN
     Indication: SUPPLEMENTATION THERAPY
     Dosage: 1 DF, QD
     Route: 048
     Dates: start: 2006, end: 201610

REACTIONS (8)
  - Tinnitus [Unknown]
  - Drug hypersensitivity [None]
  - Energy increased [Unknown]
  - Reye^s syndrome [Unknown]
  - Neuralgia [Unknown]
  - Product use issue [Unknown]
  - Head discomfort [Unknown]
  - Pruritus [Recovered/Resolved]
